FAERS Safety Report 13932530 (Version 1)
Quarter: 2017Q3

REPORT INFORMATION
  Report Type: Spontaneous
  Country: GB (occurrence: GB)
  Receive Date: 20170904
  Receipt Date: 20170904
  Transmission Date: 20171127
  Serious: Yes (Hospitalization)
  Sender: FDA-Public Use
  Company Number: GB-ACCORD-057872

PATIENT
  Age: 48 Year
  Sex: Female
  Weight: 69.85 kg

DRUGS (1)
  1. AMITRIPTYLINE [Suspect]
     Active Substance: AMITRIPTYLINE
     Indication: IRRITABLE BOWEL SYNDROME
     Route: 048
     Dates: end: 20170806

REACTIONS (3)
  - Condition aggravated [Unknown]
  - Off label use [Unknown]
  - Vaginal haemorrhage [Recovered/Resolved]
